FAERS Safety Report 16268748 (Version 1)
Quarter: 2019Q2

REPORT INFORMATION
  Report Type: Spontaneous
  Country: UA (occurrence: UA)
  Receive Date: 20190503
  Receipt Date: 20190503
  Transmission Date: 20190711
  Serious: Yes (Hospitalization)
  Sender: FDA-Public Use
  Company Number: UA-ROCHE-2310717

PATIENT
  Age: 11 Year

DRUGS (20)
  1. HERPEVIR [Suspect]
     Active Substance: ACYCLOVIR
     Indication: ANTIBIOTIC THERAPY
     Route: 065
  2. SOLU-CORTEF [Suspect]
     Active Substance: HYDROCORTISONE SODIUM SUCCINATE
     Indication: HORMONE THERAPY
     Route: 065
  3. PREDNISOLONE. [Suspect]
     Active Substance: PREDNISOLONE
     Indication: HORMONE THERAPY
     Route: 065
  4. DEXAZONE [Suspect]
     Active Substance: DEXAMETHASONE
     Indication: HORMONE THERAPY
     Route: 065
  5. VANCOMYCIN [Suspect]
     Active Substance: VANCOMYCIN
     Indication: ANTIBIOTIC THERAPY
     Route: 065
  6. ALMAGEL [ALUMINIUM HYDROXIDE;MAGNESIUM HYDROXIDE] [Concomitant]
     Indication: PROPHYLAXIS
  7. DOBUTAMINE [Concomitant]
     Active Substance: DOBUTAMINE\DOBUTAMINE HYDROCHLORIDE
     Indication: SYMPATHOMIMETIC EFFECT
     Route: 065
  8. CIPROFLOXACIN. [Suspect]
     Active Substance: CIPROFLOXACIN
     Indication: ANTIBIOTIC THERAPY
     Route: 065
  9. MEROPENEM. [Suspect]
     Active Substance: MEROPENEM
     Indication: ANTIBIOTIC THERAPY
     Route: 065
  10. CARBAMAZEPINE. [Concomitant]
     Active Substance: CARBAMAZEPINE
  11. CONVULEXETTE [Concomitant]
     Active Substance: VALPROIC ACID
     Indication: EPILEPSY
     Route: 065
  12. LASIX [Concomitant]
     Active Substance: FUROSEMIDE
     Indication: OEDEMA
     Route: 065
  13. GANCICLOVIR. [Suspect]
     Active Substance: GANCICLOVIR
     Indication: ANTIVIRAL TREATMENT
     Route: 065
  14. DIFLUCAN [Suspect]
     Active Substance: FLUCONAZOLE
     Route: 065
  15. DOPAMINE [Concomitant]
     Active Substance: DOPAMINE\DOPAMINE HYDROCHLORIDE
     Indication: SYMPATHOMIMETIC EFFECT
     Route: 065
  16. CONVULEXETTE [Concomitant]
     Active Substance: VALPROIC ACID
  17. MANITOL [Concomitant]
     Active Substance: MANNITOL
     Indication: OEDEMA
     Route: 065
  18. QUAMATEL [Concomitant]
     Active Substance: FAMOTIDINE
     Indication: PROPHYLAXIS
     Route: 065
  19. DIFLUCAN [Suspect]
     Active Substance: FLUCONAZOLE
     Indication: ANTIFUNGAL TREATMENT
     Route: 065
  20. CEFTRIAXONE. [Suspect]
     Active Substance: CEFTRIAXONE
     Indication: ANTIBIOTIC THERAPY
     Route: 065

REACTIONS (14)
  - Adrenal insufficiency [Unknown]
  - Cardiac arrest [Unknown]
  - Vital functions abnormal [Unknown]
  - Coma [Unknown]
  - Multiple organ dysfunction syndrome [Unknown]
  - Cardiovascular insufficiency [Unknown]
  - Cardiac failure [Unknown]
  - Subacute sclerosing panencephalitis [Unknown]
  - Respiratory failure [Unknown]
  - Bradycardia [Unknown]
  - Disseminated intravascular coagulation [Unknown]
  - Off label use [Unknown]
  - Hypotension [Unknown]
  - Product use issue [Unknown]
